FAERS Safety Report 25618945 (Version 2)
Quarter: 2025Q3

REPORT INFORMATION
  Report Type: Spontaneous
  Country: EU (occurrence: EU)
  Receive Date: 20250729
  Receipt Date: 20250806
  Transmission Date: 20251021
  Serious: Yes (Death, Other)
  Sender: FRESENIUS KABI
  Company Number: None

PATIENT
  Age: 36 Year
  Sex: Female
  Weight: 56 kg

DRUGS (27)
  1. PROPOFOL [Suspect]
     Active Substance: PROPOFOL
     Indication: Sedation
     Route: 042
     Dates: start: 20250424, end: 20250429
  2. PROPOFOL [Suspect]
     Active Substance: PROPOFOL
     Indication: Complications of transplanted pancreas
  3. PROPOFOL [Suspect]
     Active Substance: PROPOFOL
     Indication: Complications of transplanted kidney
  4. NORADRENALIN solution for infusion 0,04MG/ML / Brand name not specifie [Concomitant]
     Indication: Product used for unknown indication
  5. DOBUTAMINE solution for infusion 5MG/ML / Brand name not specified [Concomitant]
     Indication: Product used for unknown indication
  6. INSULIN ASPART solution for injection 100E/ML / Brand name not specifi [Concomitant]
     Indication: Product used for unknown indication
  7. TACROLIMUS solution for infusion CONC 5MG/ML / PROGRAFT solution for i [Concomitant]
     Indication: Product used for unknown indication
  8. SUFENTANIL solution for injection  5UG/ML / Brand name not specified [Concomitant]
     Indication: Product used for unknown indication
  9. METRONIDAZOLE solution for infusion 5MG/ML / Brand name not specified [Concomitant]
     Indication: Product used for unknown indication
  10. CEFUROXIME solution for infusion 60MG/ML / Brand name not specified [Concomitant]
     Indication: Product used for unknown indication
  11. HYDROCORTISONE BUTYRATE SOLUTION CUTANEOUS 1MG/ML / Brand name not spe [Concomitant]
     Indication: Product used for unknown indication
     Route: 003
  12. NADROPARIN solution for injection  9500IE/ML / Brand name not specifie [Concomitant]
     Indication: Product used for unknown indication
  13. CALCIUM GLUCONATE [Concomitant]
     Active Substance: CALCIUM GLUCONATE
     Indication: Product used for unknown indication
  14. PENICILLIN G [Concomitant]
     Active Substance: PENICILLIN G
     Indication: Product used for unknown indication
  15. ACETAMINOPHEN [Concomitant]
     Active Substance: ACETAMINOPHEN
     Indication: Product used for unknown indication
  16. PANTOPRAZOLE [Concomitant]
     Active Substance: PANTOPRAZOLE
     Indication: Product used for unknown indication
  17. METHYLPREDNISOLONE [Concomitant]
     Active Substance: METHYLPREDNISOLONE
     Indication: Product used for unknown indication
  18. MYCOPHENOLIC ACID [Concomitant]
     Active Substance: MYCOPHENOLIC ACID
     Indication: Product used for unknown indication
  19. MAGNESIUM SULFATE [Concomitant]
     Active Substance: MAGNESIUM SULFATE
     Indication: Product used for unknown indication
  20. ROCURONIUM [Concomitant]
     Active Substance: ROCURONIUM BROMIDE
     Indication: Product used for unknown indication
  21. DEXAMETHASONE [Concomitant]
     Active Substance: DEXAMETHASONE
     Indication: Product used for unknown indication
  22. METOCLOPRAMIDE [Concomitant]
     Active Substance: METOCLOPRAMIDE
     Indication: Product used for unknown indication
  23. ERYTHROMYCIN [Concomitant]
     Active Substance: ERYTHROMYCIN
     Indication: Product used for unknown indication
  24. PREDNISOLONE [Concomitant]
     Active Substance: PREDNISOLONE
     Indication: Product used for unknown indication
  25. THIAMINE [Concomitant]
     Active Substance: THIAMINE
     Indication: Product used for unknown indication
  26. TERLIPRESSIN [Concomitant]
     Active Substance: TERLIPRESSIN
     Indication: Product used for unknown indication
  27. PHENYLEPHRINE [Concomitant]
     Active Substance: PHENYLEPHRINE
     Indication: Product used for unknown indication

REACTIONS (1)
  - Propofol infusion syndrome [Fatal]
